FAERS Safety Report 9568924 (Version 1)
Quarter: 2013Q3

REPORT INFORMATION
  Report Type: Spontaneous
  Country: US (occurrence: US)
  Receive Date: 20130930
  Receipt Date: 20130930
  Transmission Date: 20140515
  Serious: No
  Sender: FDA-Public Use
  Company Number: US-AMGEN-USASP2013060708

PATIENT
  Age: 47 Year
  Sex: Female
  Weight: 49.89 kg

DRUGS (5)
  1. ENBREL [Suspect]
     Indication: PRODUCT USED FOR UNKNOWN INDICATION
     Dosage: 25 MG, 2 TIMES/WK
     Route: 058
  2. HYDROCHLOROTH [Concomitant]
     Dosage: 25 MG, UNK
  3. CLARITIN [Concomitant]
     Dosage: 10 MG, UNK
  4. VITAMIN B12                        /00056201/ [Concomitant]
     Dosage: 1000 CR UNK
  5. VITAMIN D3 [Concomitant]
     Dosage: 10000 UNIT, UNK

REACTIONS (1)
  - Injection site pain [Unknown]
